FAERS Safety Report 7582757-4 (Version None)
Quarter: 2011Q2

REPORT INFORMATION
  Report Type: 
  Country: None (occurrence: None)
  Receive Date: 20110630
  Receipt Date: 20110627
  Transmission Date: 20111010
  Serious: Yes (Death, Hospitalization, Other)
  Sender: FDA-Public Use
  Company Number: FR-PFIZER INC-2011141902

PATIENT
  Age: 77 Year
  Sex: Male

DRUGS (8)
  1. DIAMICRON [Concomitant]
     Dosage: 30 MG, 1X/DAY
     Route: 048
     Dates: end: 20110411
  2. FINASTERIDE [Concomitant]
     Dosage: 5 MG, 1X/DAY
     Route: 048
     Dates: end: 20110411
  3. ASPIRIN [Concomitant]
     Dosage: 160 MG, 1X/DAY
     Route: 048
     Dates: end: 20110411
  4. NOVORAPID [Concomitant]
     Dosage: UNK
     Route: 058
     Dates: end: 20110411
  5. TRANSIPEG [Concomitant]
     Dosage: 10.8 G, 1X/DAY
     Route: 048
     Dates: end: 20110411
  6. GLUCOPHAGE [Concomitant]
     Dosage: 500 MG, 3X/DAY
     Route: 048
     Dates: end: 20110411
  7. ATORVASTATIN CALCIUM [Suspect]
     Dosage: 10 MG, 1X/DAY
     Route: 048
     Dates: start: 20101122, end: 20110409
  8. PERINDOPRIL [Concomitant]
     Dosage: 4 MG, 1X/DAY
     Route: 048
     Dates: end: 20110411

REACTIONS (3)
  - RENAL FAILURE [None]
  - HEPATIC ENCEPHALOPATHY [None]
  - AUTOIMMUNE HEPATITIS [None]
